FAERS Safety Report 6181485-X (Version None)
Quarter: 2009Q2

REPORT INFORMATION
  Report Type: 
  Country: None (occurrence: None)
  Receive Date: 20090506
  Receipt Date: 20090423
  Transmission Date: 20091009
  Serious: Yes (Hospitalization)
  Sender: FDA-Public Use
  Company Number: US-AVENTIS-200913694GDDC

PATIENT
  Age: 64 Year
  Sex: Male
  Weight: 93.8 kg

DRUGS (11)
  1. TAXOTERE [Suspect]
     Route: 042
     Dates: start: 20090209, end: 20090323
  2. CRESTOR [Concomitant]
  3. PREDNISONE [Concomitant]
  4. THALITONE [Concomitant]
     Route: 048
  5. TOPROL-XL [Concomitant]
  6. ACYCLOVIR [Concomitant]
     Route: 048
  7. CASODEX [Concomitant]
     Route: 048
  8. HYDROCHLOROTHIAZIDE [Concomitant]
     Route: 048
  9. VITAMIN E [Concomitant]
     Route: 048
  10. NEXIUM [Concomitant]
     Route: 048
  11. PREDNISONE [Concomitant]
     Route: 048
     Dates: start: 20090201

REACTIONS (6)
  - ADRENAL INSUFFICIENCY [None]
  - DIZZINESS [None]
  - HYPOKALAEMIA [None]
  - LEUKOPENIA [None]
  - LYMPHOPENIA [None]
  - ORTHOSTATIC HYPOTENSION [None]
